FAERS Safety Report 9415004 (Version 1)
Quarter: 2013Q3

REPORT INFORMATION
  Report Type: Spontaneous
  Country: CH (occurrence: CH)
  Receive Date: 20130723
  Receipt Date: 20130723
  Transmission Date: 20140515
  Serious: Yes (Hospitalization)
  Sender: FDA-Public Use
  Company Number: CH-JNJFOC-20130706514

PATIENT
  Age: 80 Year
  Sex: Female

DRUGS (14)
  1. DUROGESIC [Suspect]
     Indication: PAIN
     Dosage: 12,6 MG FENTANYL PRO PFLASTER 31,5 CM?.
     Route: 062
     Dates: start: 20130625, end: 20130626
  2. LASIX [Concomitant]
     Route: 042
  3. TRITTICO [Concomitant]
     Route: 048
  4. XYZAL [Concomitant]
     Route: 048
  5. TOREM [Concomitant]
     Route: 048
  6. ALDACTONE [Concomitant]
     Route: 048
  7. TRIATEC [Concomitant]
     Route: 048
  8. ASPIRIN CARDIO [Concomitant]
     Route: 048
  9. JANUVIA [Concomitant]
     Route: 048
  10. MARCOUMAR [Concomitant]
     Route: 048
  11. PANTOZOL [Concomitant]
     Route: 048
  12. DIGOXIN [Concomitant]
     Route: 048
  13. CONCOR [Concomitant]
     Route: 048
  14. TRANSIPEG [Concomitant]
     Route: 048

REACTIONS (3)
  - Depressed level of consciousness [Recovered/Resolved]
  - Overdose [Recovered/Resolved]
  - Dyspnoea [Recovered/Resolved]
